FAERS Safety Report 8918609 (Version 2)
Quarter: 2012Q4

REPORT INFORMATION
  Report Type: Report from Study
  Country: DE (occurrence: DE)
  Receive Date: 20121120
  Receipt Date: 20121128
  Transmission Date: 20130627
  Serious: Yes (Hospitalization)
  Sender: FDA-Public Use
  Company Number: DE-ROCHE-1153454

PATIENT
  Age: 72 Year
  Sex: Male
  Weight: 61 kg

DRUGS (11)
  1. LAFOL [Concomitant]
     Route: 065
     Dates: start: 20100504
  2. BISOPROLOL [Concomitant]
     Route: 065
  3. MCP [Concomitant]
     Route: 065
  4. NOVAMINSULFON [Concomitant]
     Route: 065
  5. BEVACIZUMAB [Suspect]
     Indication: NON-SMALL CELL LUNG CANCER
     Dosage: last dose prior to SAE :08/Jul/2010
     Route: 042
     Dates: start: 20100512
  6. BEVACIZUMAB [Suspect]
     Indication: NON-SMALL CELL LUNG CANCER
  7. PEMETREXED [Suspect]
     Indication: NON-SMALL CELL LUNG CANCER
     Dosage: last dose prior to SAE: 11/Jun/2010
     Route: 042
     Dates: start: 20100512
  8. TOREM [Concomitant]
     Route: 065
  9. TOREM [Concomitant]
     Route: 065
  10. ONBREZ [Concomitant]
     Route: 065
  11. SPIRIVA [Concomitant]
     Route: 065

REACTIONS (1)
  - Cardiac failure [Recovered/Resolved]
